FAERS Safety Report 9415031 (Version 3)
Quarter: 2014Q2

REPORT INFORMATION
  Report Type: Report from Study
  Country: CA (occurrence: CA)
  Receive Date: 20130723
  Receipt Date: 20140509
  Transmission Date: 20141212
  Serious: Yes (Hospitalization)
  Sender: FDA-Public Use
  Company Number: CA-JNJFOC-20130711093

PATIENT
  Age: 44 Year
  Sex: Male
  Weight: 151 kg

DRUGS (8)
  1. REMICADE [Suspect]
     Indication: PSORIASIS
     Dosage: 21TH INFUSION
     Route: 042
     Dates: start: 20140310
  2. REMICADE [Suspect]
     Indication: PSORIASIS
     Dosage: 17TH INFUSION
     Route: 042
     Dates: start: 20130715
  3. REMICADE [Suspect]
     Indication: PSORIASIS
     Dosage: 16 INFUSION
     Route: 042
     Dates: start: 20130514
  4. REMICADE [Suspect]
     Indication: PSORIASIS
     Route: 042
     Dates: start: 20110406
  5. AMLODIPINE [Concomitant]
     Route: 065
  6. CYMBALTA [Concomitant]
     Route: 065
  7. GLUMETZA [Concomitant]
     Route: 065
  8. WELLBUTRIN [Concomitant]
     Route: 065

REACTIONS (6)
  - Nephrolithiasis [Not Recovered/Not Resolved]
  - Tooth abscess [Recovered/Resolved]
  - Limb injury [Recovered/Resolved]
  - Kidney infection [Not Recovered/Not Resolved]
  - Foot fracture [Recovered/Resolved]
  - Drug ineffective [Not Recovered/Not Resolved]
